FAERS Safety Report 5565121-9 (Version None)
Quarter: 2007Q4

REPORT INFORMATION
  Report Type: 
  Country: None (occurrence: None)
  Receive Date: 20071218
  Receipt Date: 20071212
  Transmission Date: 20080405
  Serious: Yes (Other)
  Sender: FDA-Public Use
  Company Number: US-ASTRAZENECA-2007UW23151

PATIENT
  Age: 45 Year
  Sex: Female
  Weight: 106.6 kg

DRUGS (6)
  1. SEROQUEL [Suspect]
     Indication: BIPOLAR I DISORDER
     Route: 048
     Dates: start: 20051018
  2. CYMBALTA [Concomitant]
  3. LORAZAPEM [Concomitant]
  4. HYCODONE [Concomitant]
  5. SOMA [Concomitant]
  6. ATIVAN [Concomitant]
     Indication: ANXIETY
     Route: 048
     Dates: start: 20070315

REACTIONS (4)
  - DENTAL CARIES [None]
  - DRY MOUTH [None]
  - SENSITIVITY OF TEETH [None]
  - TOOTH DISORDER [None]
